FAERS Safety Report 7216345-6 (Version None)
Quarter: 2011Q1

REPORT INFORMATION
  Report Type: 
  Country: None (occurrence: None)
  Receive Date: 20110105
  Receipt Date: 20110105
  Transmission Date: 20110831
  Serious: No
  Sender: FDA-Public Use
  Company Number: None

PATIENT
  Sex: Female
  Weight: 56.6996 kg

DRUGS (1)
  1. OMEPRAZOLE AND SODIUM BICARBONATE [Suspect]
     Indication: REFLUX OESOPHAGITIS
     Dosage: 40-1100 OD PO
     Route: 048
     Dates: start: 20101020

REACTIONS (2)
  - DRUG INEFFECTIVE [None]
  - PRODUCT SUBSTITUTION ISSUE [None]
